FAERS Safety Report 4522397-4 (Version None)
Quarter: 2004Q4

REPORT INFORMATION
  Report Type: 
  Country: None (occurrence: None)
  Receive Date: 20041207
  Receipt Date: 20041119
  Transmission Date: 20050328
  Serious: Yes (Other)
  Sender: FDA-Public Use
  Company Number: US_040199862

PATIENT
  Age: 24 Year
  Sex: Male
  Weight: 83 kg

DRUGS (2)
  1. HUMALOG [Suspect]
     Indication: DIABETES MELLITUS
     Dosage: 4 U
     Dates: start: 20020101
  2. INSULIN GLARGINE [Concomitant]

REACTIONS (6)
  - DEAFNESS [None]
  - EAR INFECTION [None]
  - PHARMACEUTICAL PRODUCT COMPLAINT [None]
  - POST PROCEDURAL COMPLICATION [None]
  - POST PROCEDURAL DRAINAGE [None]
  - TYMPANIC MEMBRANE PERFORATION [None]
